FAERS Safety Report 4643167-2 (Version None)
Quarter: 2005Q2

REPORT INFORMATION
  Report Type: 
  Country: None (occurrence: None)
  Receive Date: 20050421
  Receipt Date: 20050228
  Transmission Date: 20051028
  Serious: Yes (Death)
  Sender: FDA-Public Use
  Company Number: CERZ-10870

PATIENT
  Age: 37 Year
  Sex: Male

DRUGS (1)
  1. CEREZYME [Suspect]
     Indication: GAUCHER'S DISEASE
     Dosage: 2000 UNITS Q2WKS IV
     Route: 042
     Dates: start: 20011221

REACTIONS (1)
  - TREATMENT NONCOMPLIANCE [None]
